FAERS Safety Report 15338464 (Version 3)
Quarter: 2018Q4

REPORT INFORMATION
  Report Type: Report from Study
  Country: US (occurrence: US)
  Receive Date: 20180831
  Receipt Date: 20181005
  Transmission Date: 20190204
  Serious: Yes (Hospitalization)
  Sender: FDA-Public Use
  Company Number: US-ROCHE-2176872

PATIENT
  Age: 61 Year
  Sex: Female
  Weight: 61.8 kg

DRUGS (6)
  1. TRASTUZUMAB. [Suspect]
     Active Substance: TRASTUZUMAB
     Dosage: MAINTENANCE DOSE AS PER PROTOCOL
     Route: 042
  2. TRASTUZUMAB. [Suspect]
     Active Substance: TRASTUZUMAB
     Indication: HER-2 POSITIVE BREAST CANCER
     Dosage: LOADING DOSE AS PER PROTOCOL.?NEOADJUVANT
     Route: 042
     Dates: start: 20180823
  3. PERTUZUMAB. [Suspect]
     Active Substance: PERTUZUMAB
     Dosage: MAINTENANCE DOSE AS PER PROTOCOL.
     Route: 042
  4. TAXOTERE [Concomitant]
     Active Substance: DOCETAXEL
     Dosage: NEOADJUVANT
     Route: 065
     Dates: start: 20180823
  5. CARBOPLATIN. [Concomitant]
     Active Substance: CARBOPLATIN
     Dosage: NEOADJUVANT
     Route: 065
     Dates: start: 20180823
  6. PERTUZUMAB. [Suspect]
     Active Substance: PERTUZUMAB
     Indication: HER-2 POSITIVE BREAST CANCER
     Dosage: LOADING DOSE AS PER PROTOCOL.?NEOADJUVANT
     Route: 042
     Dates: start: 20180823

REACTIONS (1)
  - Intestinal obstruction [Unknown]

NARRATIVE: CASE EVENT DATE: 20180826
